FAERS Safety Report 9829304 (Version 2)
Quarter: 2014Q1

REPORT INFORMATION
  Report Type: Report from Study
  Country: FR (occurrence: FR)
  Receive Date: 20140120
  Receipt Date: 20140201
  Transmission Date: 20141002
  Serious: Yes (Hospitalization, Other)
  Sender: FDA-Public Use
  Company Number: FR-ROCHE-1332122

PATIENT
  Sex: Female

DRUGS (3)
  1. RITUXIMAB [Suspect]
     Indication: RHEUMATOID ARTHRITIS
     Route: 065
     Dates: start: 20080909
  2. METHOTREXATE [Concomitant]
  3. CORTANCYL [Concomitant]

REACTIONS (7)
  - Cholecystectomy [Unknown]
  - Cell death [Unknown]
  - Tracheitis [Recovered/Resolved]
  - Rhinitis [Recovered/Resolved]
  - Sinusitis [Recovered/Resolved]
  - Vulvovaginal mycotic infection [Unknown]
  - Anal fissure [Unknown]
